FAERS Safety Report 14147344 (Version 2)
Quarter: 2017Q4

REPORT INFORMATION
  Report Type: Spontaneous
  Country: US (occurrence: US)
  Receive Date: 20171101
  Receipt Date: 20171109
  Transmission Date: 20180321
  Serious: No
  Sender: FDA-Public Use
  Company Number: US-009507513-1710USA013666

PATIENT
  Sex: Female

DRUGS (1)
  1. NEXPLANON [Suspect]
     Active Substance: ETONOGESTREL
     Dosage: UNK
     Route: 059

REACTIONS (4)
  - Device breakage [Unknown]
  - Implant site pain [Unknown]
  - Pain [Unknown]
  - Product quality issue [Unknown]
